FAERS Safety Report 7169932-8 (Version None)
Quarter: 2010Q4

REPORT INFORMATION
  Report Type: 
  Country: None (occurrence: None)
  Receive Date: 20101206
  Receipt Date: 20101119
  Transmission Date: 20110411
  Serious: Yes (Hospitalization)
  Sender: FDA-Public Use
  Company Number: AUR-APL-2010-02896

PATIENT
  Age: 31 Year
  Sex: Female

DRUGS (7)
  1. CEFAZOLIN [Suspect]
     Indication: PROPHYLAXIS
     Dosage: 2 G - INTRAVENOUS
     Route: 042
     Dates: start: 20101026, end: 20101026
  2. CEFAZOLIN [Suspect]
     Indication: SURGERY
     Dosage: 2 G - INTRAVENOUS
     Route: 042
     Dates: start: 20101026, end: 20101026
  3. MIDAZOLAM HCL [Concomitant]
  4. FENTANILO [Concomitant]
  5. PROPOFOL [Concomitant]
  6. DICLOFENAC [Concomitant]
  7. ONDANSETRON [Concomitant]

REACTIONS (4)
  - ERYTHEMA [None]
  - EYE IRRITATION [None]
  - OEDEMA [None]
  - PAPULE [None]
